FAERS Safety Report 19673680 (Version 1)
Quarter: 2021Q3

REPORT INFORMATION
  Report Type: Spontaneous
  Country: US (occurrence: US)
  Receive Date: 20210807
  Receipt Date: 20210807
  Transmission Date: 20211014
  Serious: Yes (Other)
  Sender: FDA-Public Use
  Company Number: None

PATIENT
  Age: 70 Year
  Sex: Female
  Weight: 63 kg

DRUGS (5)
  1. GENTEAL TEARS (MILD) [Concomitant]
     Active Substance: DEXTRAN 70\HYPROMELLOSE 2910 (4000 MPA.S)
  2. PREDNISONE. [Concomitant]
     Active Substance: PREDNISONE
  3. NEOMYCIN AND POLYMYXIN B SULFATE AND DEXAMETHASONE [Concomitant]
  4. GEN TEAL TEARS [Concomitant]
  5. PREDNISOLONE ACETATE OP 1% 10 ML SANDOZ [Suspect]
     Active Substance: PREDNISOLONE ACETATE
     Indication: EYE INFECTION
     Dosage: ?          QUANTITY:5 DROP(S);?
     Route: 047
     Dates: start: 20210806, end: 20210807

REACTIONS (3)
  - Abdominal discomfort [None]
  - Ocular hyperaemia [None]
  - Wrong technique in product usage process [None]

NARRATIVE: CASE EVENT DATE: 20210806
